FAERS Safety Report 9404683 (Version 1)
Quarter: 2013Q3

REPORT INFORMATION
  Report Type: Spontaneous
  Country: US (occurrence: US)
  Receive Date: 20130717
  Receipt Date: 20130717
  Transmission Date: 20140515
  Serious: Yes (Other)
  Sender: FDA-Public Use
  Company Number: PHEH2013US014853

PATIENT
  Age: 37 Year
  Sex: Female
  Weight: 112 kg

DRUGS (3)
  1. FEMARA [Suspect]
     Indication: INFERTILITY
     Dosage: UNK UKN, UNK
  2. REBIF [Suspect]
     Indication: MULTIPLE SCLEROSIS
     Dosage: 44 UG, 3 IN 1 WEEK
     Route: 058
     Dates: start: 20101020, end: 20120828
  3. REBIF [Suspect]
     Dosage: 44 UG, 3 IN 1 WEEK
     Route: 058
     Dates: start: 20130227

REACTIONS (2)
  - Abortion spontaneous [Recovered/Resolved]
  - Maternal exposure during pregnancy [Recovered/Resolved]
